FAERS Safety Report 5553336-5 (Version None)
Quarter: 2007Q4

REPORT INFORMATION
  Report Type: 
  Country: None (occurrence: None)
  Receive Date: 20071207
  Receipt Date: 20071207
  Transmission Date: 20080405
  Serious: No
  Sender: FDA-Public Use
  Company Number: None

PATIENT
  Sex: Female
  Weight: 55.7924 kg

DRUGS (3)
  1. CEPHALEXIN [Suspect]
     Indication: FEELING HOT
     Dosage: 500MG
     Dates: start: 20071123, end: 20071126
  2. CEPHALEXIN [Suspect]
     Indication: INCISION SITE COMPLICATION
     Dosage: 500MG
     Dates: start: 20071123, end: 20071126
  3. CEPHALEXIN [Suspect]
     Indication: INCISION SITE ERYTHEMA
     Dosage: 500MG
     Dates: start: 20071123, end: 20071126

REACTIONS (2)
  - DIZZINESS [None]
  - PHARMACEUTICAL PRODUCT COMPLAINT [None]
